FAERS Safety Report 19448835 (Version 1)
Quarter: 2021Q2

REPORT INFORMATION
  Report Type: Spontaneous
  Country: JP (occurrence: JP)
  Receive Date: 20210622
  Receipt Date: 20210622
  Transmission Date: 20210717
  Serious: Yes (Death, Hospitalization, Other)
  Sender: FDA-Public Use
  Company Number: JP-MYLANLABS-2021M1035136

PATIENT
  Age: 85 Year
  Sex: Male

DRUGS (4)
  1. PREDNISOLONE. [Suspect]
     Active Substance: PREDNISOLONE
     Indication: PROSTATE CANCER
     Dosage: 10 MILLIGRAM, QD
     Route: 048
     Dates: start: 20200930
  2. COVID?19 VACCINE NOS. [Suspect]
     Active Substance: COVID-19 VACCINE NOS
     Indication: PROPHYLAXIS
     Dosage: UNK
     Route: 030
     Dates: start: 20210526, end: 20210526
  3. LEUPRORELIN                        /00726902/ [Concomitant]
     Active Substance: LEUPROLIDE ACETATE
     Indication: PROSTATE CANCER
     Route: 065
  4. ZYTIGA [Concomitant]
     Active Substance: ABIRATERONE ACETATE
     Indication: PROSTATE CANCER
     Route: 048

REACTIONS (3)
  - Interstitial lung disease [Fatal]
  - Pneumocystis jirovecii pneumonia [Unknown]
  - Infection susceptibility increased [Unknown]

NARRATIVE: CASE EVENT DATE: 20210529
